FAERS Safety Report 23442681 (Version 3)
Quarter: 2024Q1

REPORT INFORMATION
  Report Type: Spontaneous
  Country: US (occurrence: US)
  Receive Date: 20240125
  Receipt Date: 20240307
  Transmission Date: 20240410
  Serious: No
  Sender: FDA-Public Use
  Company Number: US-PFIZER INC-PV202400002213

PATIENT
  Age: 14 Year
  Sex: Female

DRUGS (1)
  1. GENOTROPIN [Suspect]
     Active Substance: SOMATROPIN
     Indication: Growth disorder
     Dosage: 1.4MG ONCE A DAY INJECT INTO STOMACH AREA OR UPPER THIGH
     Dates: start: 2023

REACTIONS (5)
  - Drug dose omission by device [Unknown]
  - Incorrect dose administered [Unknown]
  - Device information output issue [Unknown]
  - Device defective [Unknown]
  - Device use error [Unknown]

NARRATIVE: CASE EVENT DATE: 20240104
